FAERS Safety Report 20545865 (Version 1)
Quarter: 2022Q1

REPORT INFORMATION
  Report Type: Report from Study
  Country: CA (occurrence: CA)
  Receive Date: 20220303
  Receipt Date: 20220303
  Transmission Date: 20220423
  Serious: Yes (Hospitalization)
  Sender: FDA-Public Use
  Company Number: CA-MYLANLABS-2022M1016537

PATIENT
  Age: 3 Decade
  Sex: Male

DRUGS (3)
  1. CLOZAPINE [Interacting]
     Active Substance: CLOZAPINE
     Indication: Psychotic disorder
     Dosage: 150 MILLIGRAM, BID
     Route: 065
  2. CLOZAPINE [Interacting]
     Active Substance: CLOZAPINE
     Dosage: 150 MILLIGRAM, QD
     Route: 065
  3. FLUVOXAMINE [Interacting]
     Active Substance: FLUVOXAMINE
     Indication: Psychotic disorder
     Dosage: 225 MILLIGRAM, QD
     Route: 065

REACTIONS (7)
  - Sedation [Recovering/Resolving]
  - Orthostatic hypotension [Unknown]
  - Salivary hypersecretion [Unknown]
  - Condition aggravated [Unknown]
  - Drug ineffective [Unknown]
  - Drug level increased [Unknown]
  - Labelled drug-drug interaction medication error [Unknown]
